FAERS Safety Report 12704755 (Version 4)
Quarter: 2017Q1

REPORT INFORMATION
  Report Type: Report from Study
  Country: US (occurrence: US)
  Receive Date: 20160831
  Receipt Date: 20170127
  Transmission Date: 20170428
  Serious: Yes (Hospitalization)
  Sender: FDA-Public Use
  Company Number: US-ACTELION-A-US2016-139899

PATIENT
  Age: 80 Year
  Sex: Male

DRUGS (2)
  1. TRACLEER [Suspect]
     Active Substance: BOSENTAN
     Indication: PULMONARY ARTERIAL HYPERTENSION
     Dosage: 125 MG, BID
     Route: 048
     Dates: start: 20110131
  2. TYVASO [Concomitant]
     Active Substance: TREPROSTINIL

REACTIONS (7)
  - Pneumonia [Unknown]
  - Dyspnoea [Unknown]
  - Asthenia [Unknown]
  - Epistaxis [Unknown]
  - Sinusitis [Unknown]
  - Oxygen saturation decreased [Unknown]
  - Localised infection [Unknown]
